FAERS Safety Report 6105873-2 (Version None)
Quarter: 2009Q1

REPORT INFORMATION
  Report Type: 
  Country: None (occurrence: None)
  Receive Date: 20090306
  Receipt Date: 20090302
  Transmission Date: 20090719
  Serious: Yes (Other)
  Sender: FDA-Public Use
  Company Number: DE-ROCHE-617982

PATIENT
  Sex: Male

DRUGS (1)
  1. ROFERON-A [Suspect]
     Route: 065
     Dates: start: 20010101

REACTIONS (3)
  - DYSPNOEA [None]
  - LUNG NEOPLASM [None]
  - PYREXIA [None]
